FAERS Safety Report 20813976 (Version 1)
Quarter: 2022Q2

REPORT INFORMATION
  Report Type: Spontaneous
  Country: CN (occurrence: CN)
  Receive Date: 20220511
  Receipt Date: 20220511
  Transmission Date: 20220721
  Serious: Yes (Hospitalization)
  Sender: FDA-Public Use
  Company Number: CN-PFIZER INC-202200644529

PATIENT
  Age: 37 Year
  Sex: Male
  Weight: 55 kg

DRUGS (5)
  1. CYTARABINE [Suspect]
     Active Substance: CYTARABINE
     Indication: Acute myeloid leukaemia
     Dosage: 4500 MG, 2X/DAY
     Route: 041
     Dates: start: 20220413, end: 20220417
  2. CYTARABINE [Suspect]
     Active Substance: CYTARABINE
     Dosage: 300 MG, 2X/DAY
     Route: 041
     Dates: start: 20220413, end: 20220417
  3. SODIUM CHLORIDE [Concomitant]
     Active Substance: SODIUM CHLORIDE
     Indication: Vehicle solution use
     Dosage: 500 ML, 2X/DAY
     Route: 041
     Dates: start: 20220413, end: 20220417
  4. SODIUM CHLORIDE [Concomitant]
     Active Substance: SODIUM CHLORIDE
     Dosage: 100 ML
     Route: 041
     Dates: start: 20220413, end: 20220417
  5. ONDANSETRON HYDROCHLORIDE [Concomitant]
     Active Substance: ONDANSETRON HYDROCHLORIDE
     Indication: Prophylaxis
     Dosage: 8 MG, 1X/DAY
     Route: 041
     Dates: start: 20220413, end: 20220417

REACTIONS (3)
  - Full blood count decreased [Recovering/Resolving]
  - Pyrexia [Recovered/Resolved]
  - Temperature intolerance [Recovered/Resolved]

NARRATIVE: CASE EVENT DATE: 20220420
